FAERS Safety Report 23856370 (Version 1)
Quarter: 2024Q2

REPORT INFORMATION
  Report Type: Spontaneous
  Country: CI (occurrence: CI)
  Receive Date: 20240515
  Receipt Date: 20240515
  Transmission Date: 20240716
  Serious: Yes (Hospitalization, Other)
  Sender: FDA-Public Use
  Company Number: GB-HALEON-2174359

PATIENT
  Age: 8 Year
  Sex: Female

DRUGS (1)
  1. IBUPROFEN [Suspect]
     Active Substance: IBUPROFEN
     Indication: Pyrexia
     Route: 048

REACTIONS (14)
  - Toxic epidermal necrolysis [Unknown]
  - Oral disorder [Unknown]
  - Pain [Unknown]
  - Lymphopenia [Unknown]
  - Epidermal necrosis [Unknown]
  - Hypernatraemia [Unknown]
  - Hyperkalaemia [Unknown]
  - Scar [Not Recovered/Not Resolved]
  - Rash [Unknown]
  - Tachycardia [Unknown]
  - Tachypnoea [Unknown]
  - Skin disorder [Unknown]
  - Skin lesion [Unknown]
  - Eye ulcer [Unknown]
